FAERS Safety Report 9143765 (Version 3)
Quarter: 2013Q2

REPORT INFORMATION
  Report Type: Spontaneous
  Country: US (occurrence: US)
  Receive Date: 20130306
  Receipt Date: 20130422
  Transmission Date: 20140414
  Serious: Yes (Death, Hospitalization)
  Sender: FDA-Public Use
  Company Number: US-JNJFOC-20130301207

PATIENT
  Sex: Male

DRUGS (23)
  1. RISPERDAL [Suspect]
     Indication: PERSONALITY DISORDER
     Route: 048
  2. RISPERDAL [Suspect]
     Indication: AGITATION
     Route: 048
  3. RISPERDAL [Suspect]
     Indication: PERSONALITY DISORDER
     Route: 048
  4. RISPERDAL [Suspect]
     Indication: AGITATION
     Route: 048
  5. LOVENOX [Concomitant]
     Route: 065
  6. COLACE [Concomitant]
     Route: 065
  7. SENNA [Concomitant]
     Route: 065
  8. IBURPROFEN [Concomitant]
     Route: 065
  9. MIRTAZAPINE [Concomitant]
     Route: 065
  10. METOPROLOL [Concomitant]
     Route: 065
  11. SELENIUM [Concomitant]
     Route: 065
  12. MULTIVITAMINS [Concomitant]
     Route: 065
  13. TYLENOL [Concomitant]
     Route: 065
  14. AMIODARONE [Concomitant]
     Route: 065
  15. REMERON [Concomitant]
     Route: 065
  16. LOPRESSOR [Concomitant]
     Route: 065
  17. TRICOR [Concomitant]
     Route: 065
  18. ATIVAN [Concomitant]
     Route: 065
  19. IRON [Concomitant]
     Route: 065
  20. FOLIC ACID [Concomitant]
     Route: 065
  21. MAGNESIUM [Concomitant]
     Route: 065
  22. VALPROIC ACID [Concomitant]
     Route: 065
  23. ALBUTEROL [Concomitant]
     Route: 055

REACTIONS (11)
  - Sepsis [Fatal]
  - Encephalopathy [Fatal]
  - Renal failure [Fatal]
  - Joint dislocation [Fatal]
  - Anaemia [Unknown]
  - Fall [Unknown]
  - Cognitive disorder [Unknown]
  - Delirium [Unknown]
  - Urinary tract infection [Unknown]
  - Arteriosclerosis coronary artery [Unknown]
  - Carotid artery stenosis [Unknown]
